FAERS Safety Report 7030917-3 (Version None)
Quarter: 2010Q4

REPORT INFORMATION
  Report Type: 
  Country: None (occurrence: None)
  Receive Date: 20101006
  Receipt Date: 20100928
  Transmission Date: 20110411
  Serious: Yes (Other)
  Sender: FDA-Public Use
  Company Number: US-BAXTER-2010BH024683

PATIENT
  Sex: Female

DRUGS (2)
  1. REGLAN [Suspect]
     Indication: PRODUCT USED FOR UNKNOWN INDICATION
     Route: 042
     Dates: start: 20010501, end: 20060801
  2. REGLAN [Suspect]
     Route: 048
     Dates: start: 20010501, end: 20060801

REACTIONS (3)
  - DEMENTIA [None]
  - PARKINSON'S DISEASE [None]
  - TREMOR [None]
